FAERS Safety Report 20054124 (Version 2)
Quarter: 2021Q4

REPORT INFORMATION
  Report Type: Spontaneous
  Country: US (occurrence: None)
  Receive Date: 20211110
  Receipt Date: 20211215
  Transmission Date: 20220303
  Serious: No
  Sender: FDA-Public Use
  Company Number: 2021A785814

PATIENT
  Age: 80 Year
  Sex: Male
  Weight: 99.8 kg

DRUGS (1)
  1. BYDUREON BCISE [Suspect]
     Active Substance: EXENATIDE
     Indication: Diabetes mellitus
     Route: 058
     Dates: start: 202109

REACTIONS (5)
  - Needle issue [Unknown]
  - Injection site haemorrhage [Not Recovered/Not Resolved]
  - Incorrect dose administered by device [Unknown]
  - Multiple use of single-use product [Unknown]
  - Device delivery system issue [Unknown]

NARRATIVE: CASE EVENT DATE: 20211018
